FAERS Safety Report 18755404 (Version 2)
Quarter: 2021Q2

REPORT INFORMATION
  Report Type: Spontaneous
  Country: US (occurrence: US)
  Receive Date: 20210119
  Receipt Date: 20210412
  Transmission Date: 20210717
  Serious: Yes (Other)
  Sender: FDA-Public Use
  Company Number: US-TAKEDA-2021TUS003271

PATIENT

DRUGS (5)
  1. ULORIC [Suspect]
     Active Substance: FEBUXOSTAT
     Dosage: 40 MILLIGRAM
     Route: 048
     Dates: start: 2010, end: 20120830
  2. ULORIC [Suspect]
     Active Substance: FEBUXOSTAT
     Dosage: 40 MILLIGRAM
     Route: 048
     Dates: start: 20120831, end: 20180111
  3. ULORIC [Suspect]
     Active Substance: FEBUXOSTAT
     Indication: GOUT
     Dosage: UNK
     Route: 048
     Dates: start: 2010, end: 20180111
  4. ULORIC [Suspect]
     Active Substance: FEBUXOSTAT
     Dosage: UNK
     Route: 048
     Dates: start: 20101015, end: 20120517
  5. ULORIC [Suspect]
     Active Substance: FEBUXOSTAT
     Dosage: UNK
     Route: 048
     Dates: start: 20120831, end: 20180111

REACTIONS (5)
  - Angina unstable [Not Recovered/Not Resolved]
  - Acute myocardial infarction [Unknown]
  - Myocardial infarction [Not Recovered/Not Resolved]
  - Coronary artery disease [Not Recovered/Not Resolved]
  - Acute coronary syndrome [Unknown]

NARRATIVE: CASE EVENT DATE: 20110523
